FAERS Safety Report 18217893 (Version 1)
Quarter: 2020Q3

REPORT INFORMATION
  Report Type: Spontaneous
  Country: US (occurrence: US)
  Receive Date: 20200828
  Receipt Date: 20200828
  Transmission Date: 20201103
  Serious: Yes (Hospitalization)
  Sender: FDA-Public Use
  Company Number: None

PATIENT
  Age: 66 Year
  Sex: Female

DRUGS (19)
  1. TOBRAMYCIN 300MG/5ML 20ML [Suspect]
     Active Substance: TOBRAMYCIN
     Indication: PNEUMONIA PSEUDOMONAL
     Dosage: ?          OTHER ROUTE:INH?
  2. AMLODIPINE [Concomitant]
     Active Substance: AMLODIPINE BESYLATE
  3. DEPO?TESTOST [Concomitant]
  4. MONTELUKAST [Concomitant]
     Active Substance: MONTELUKAST SODIUM
  5. ALBUTEROL NEB [Concomitant]
     Active Substance: ALBUTEROL
  6. LEVOFLOXACIN. [Concomitant]
     Active Substance: LEVOFLOXACIN
  7. MICONAZOLE. [Concomitant]
     Active Substance: MICONAZOLE
  8. AMOXICILLIN. [Concomitant]
     Active Substance: AMOXICILLIN
  9. DESOXIMETAS CRE [Concomitant]
  10. ALBUTEROL AER [Concomitant]
     Active Substance: ALBUTEROL
  11. SEREVENT DIS [Concomitant]
  12. ASMANEX 30 [Concomitant]
  13. TRELEGY ELLIPTA [Concomitant]
     Active Substance: FLUTICASONE FUROATE\UMECLIDINIUM BROMIDE\VILANTEROL TRIFENATATE
  14. HUMIRA [Concomitant]
     Active Substance: ADALIMUMAB
  15. TRIAM/HCTZ [Concomitant]
     Active Substance: HYDROCHLOROTHIAZIDE\TRIAMTERENE
  16. LEVOTHYROXIN [Concomitant]
     Active Substance: LEVOTHYROXINE
  17. TESTOST CYP [Concomitant]
     Active Substance: TESTOSTERONE CYPIONATE
  18. DEPO?ESTRADI [Concomitant]
  19. PREDNISONE. [Concomitant]
     Active Substance: PREDNISONE

REACTIONS (1)
  - Pneumonia [None]

NARRATIVE: CASE EVENT DATE: 20200824
